FAERS Safety Report 18341021 (Version 1)
Quarter: 2020Q4

REPORT INFORMATION
  Report Type: Report from Study
  Country: CO (occurrence: CO)
  Receive Date: 20201003
  Receipt Date: 20201003
  Transmission Date: 20210113
  Serious: Yes (Hospitalization, Other)
  Sender: FDA-Public Use
  Company Number: NVSC2020CO262438

PATIENT
  Age: 64 Year
  Sex: Male
  Weight: 78 kg

DRUGS (4)
  1. ROSUVASTATIN. [Concomitant]
     Active Substance: ROSUVASTATIN
     Indication: PRODUCT USED FOR UNKNOWN INDICATION
     Dosage: 40 MG, QD (START DATE WAS 10 YEARS AGO)
     Route: 048
  2. METOPROLOL. [Suspect]
     Active Substance: METOPROLOL
     Indication: PRODUCT USED FOR UNKNOWN INDICATION
     Dosage: 50 MG (EVERY 12 HOURS)(START DATE WAS 10YEARS AGO)
     Route: 048
  3. TIROXIN [Concomitant]
     Indication: PRODUCT USED FOR UNKNOWN INDICATION
     Dosage: 75 MG, QD (START DATE WAS 10 YEARS AGO)
     Route: 048
  4. METFORMIN [Concomitant]
     Active Substance: METFORMIN HYDROCHLORIDE
     Indication: PRODUCT USED FOR UNKNOWN INDICATION
     Dosage: 500 MG, QD (START DATE WAS 10 YEARS)
     Route: 048

REACTIONS (3)
  - Platelet count decreased [Unknown]
  - Rectal haemorrhage [Recovered/Resolved]
  - Aplastic anaemia [Unknown]

NARRATIVE: CASE EVENT DATE: 202009
